FAERS Safety Report 16961600 (Version 1)
Quarter: 2019Q4

REPORT INFORMATION
  Report Type: Spontaneous
  Country: FI (occurrence: FI)
  Receive Date: 20191025
  Receipt Date: 20191025
  Transmission Date: 20200122
  Serious: Yes (Other)
  Sender: FDA-Public Use
  Company Number: FI-PFIZER INC-2019457867

PATIENT
  Age: 8 Decade
  Sex: Male

DRUGS (1)
  1. SUTENT [Suspect]
     Active Substance: SUNITINIB MALATE
     Indication: CLEAR CELL RENAL CELL CARCINOMA
     Dosage: 50 MG, 4+2 WEEK REGIMEN
     Dates: start: 200901, end: 2009

REACTIONS (3)
  - Cytopenia [Unknown]
  - Hypertensive crisis [Unknown]
  - Fatigue [Unknown]

NARRATIVE: CASE EVENT DATE: 2009
